FAERS Safety Report 8336032-0 (Version None)
Quarter: 2012Q2

REPORT INFORMATION
  Report Type: 
  Country: None (occurrence: None)
  Receive Date: 20120501
  Receipt Date: 20120501
  Transmission Date: 20120825
  Serious: Yes (Hospitalization)
  Sender: FDA-Public Use
  Company Number: None

PATIENT
  Age: 85 Year
  Sex: Female
  Weight: 96.8 kg

DRUGS (22)
  1. LIDODERM [Concomitant]
  2. AMBIEN [Concomitant]
  3. M.V.I. [Concomitant]
  4. BONIVA [Concomitant]
  5. PROTONIX [Concomitant]
  6. CYCLOSPORINE [Concomitant]
  7. CYMBALTA [Concomitant]
  8. LYRICA [Concomitant]
  9. AGGRENOX [Concomitant]
  10. FENTANYL CITRATE [Concomitant]
  11. NUCYNTA [Concomitant]
  12. MIRALAX [Concomitant]
  13. TRAZODONE HCL [Concomitant]
  14. TYLENOL (CAPLET) [Concomitant]
  15. REGLAN [Concomitant]
  16. TIMOLOL MALEATE [Concomitant]
  17. ASPIRIN [Concomitant]
  18. BIOTENE [Concomitant]
  19. SENNA-MINT WAF [Concomitant]
  20. VANCOMYCIN [Suspect]
     Indication: STAPHYLOCOCCAL INFECTION
     Dosage: 1500MG Q24HRS IV RECENT
     Route: 042
  21. VITAMIN D [Concomitant]
  22. BUSPAR [Concomitant]

REACTIONS (9)
  - RASH [None]
  - ENCEPHALOPATHY [None]
  - TUBULOINTERSTITIAL NEPHRITIS [None]
  - TOXICITY TO VARIOUS AGENTS [None]
  - PYREXIA [None]
  - SEPSIS [None]
  - RENAL TUBULAR NECROSIS [None]
  - HYPOTENSION [None]
  - RENAL FAILURE ACUTE [None]
